FAERS Safety Report 17762418 (Version 1)
Quarter: 2020Q2

REPORT INFORMATION
  Report Type: Spontaneous
  Country: IN (occurrence: IN)
  Receive Date: 20200508
  Receipt Date: 20200508
  Transmission Date: 20200714
  Serious: Yes (Hospitalization, Other)
  Sender: FDA-Public Use
  Company Number: NVSC2020IN124758

PATIENT
  Age: 71 Year
  Sex: Male

DRUGS (1)
  1. PAZOPANIB [Suspect]
     Active Substance: PAZOPANIB
     Indication: METASTATIC RENAL CELL CARCINOMA
     Dosage: 800 MG, QD
     Route: 065

REACTIONS (4)
  - Cardiac tamponade [Recovered/Resolved]
  - Diastolic dysfunction [Recovered/Resolved]
  - Hypothyroidism [Recovering/Resolving]
  - Pericardial effusion [Recovered/Resolved]
